FAERS Safety Report 4323493-7 (Version None)
Quarter: 2004Q1

REPORT INFORMATION
  Report Type: 
  Country: None (occurrence: None)
  Receive Date: 20040325
  Receipt Date: 20031022
  Transmission Date: 20041129
  Serious: Yes (Hospitalization, Other)
  Sender: FDA-Public Use
  Company Number: 12418042

PATIENT
  Age: 58 Year
  Sex: Female

DRUGS (1)
  1. TAXOL [Suspect]
     Indication: BREAST CANCER METASTATIC
     Route: 042
     Dates: start: 20021205, end: 20021228

REACTIONS (7)
  - ABDOMINAL PAIN [None]
  - HAEMOGLOBIN DECREASED [None]
  - HYPOCALCAEMIA [None]
  - NEUTROPHIL COUNT DECREASED [None]
  - OEDEMA [None]
  - TETANY [None]
  - WHITE BLOOD CELL COUNT DECREASED [None]
